FAERS Safety Report 9988803 (Version 5)
Quarter: 2015Q1

REPORT INFORMATION
  Report Type: Spontaneous
  Country: US (occurrence: US)
  Receive Date: 20140310
  Receipt Date: 20150212
  Transmission Date: 20150721
  Serious: Yes (Hospitalization, Other)
  Sender: FDA-Public Use
  Company Number: US-009507513-1403USA002916

PATIENT
  Sex: Female
  Weight: 52.61 kg

DRUGS (7)
  1. ALENDRONATE SODIUM. [Suspect]
     Active Substance: ALENDRONATE SODIUM
     Dosage: 70 MG, QD
     Route: 048
     Dates: start: 2009
  2. LOPRESSOR [Concomitant]
     Active Substance: METOPROLOL TARTRATE
     Indication: PRODUCT USED FOR UNKNOWN INDICATION
     Dosage: 25 MG, BID
     Dates: start: 1980
  3. PRILOSEC [Concomitant]
     Active Substance: OMEPRAZOLE MAGNESIUM
     Indication: PRODUCT USED FOR UNKNOWN INDICATION
     Dosage: 20 MG, QD
     Route: 048
     Dates: start: 1984
  4. PREDNISONE. [Concomitant]
     Active Substance: PREDNISONE
     Indication: RHEUMATOID ARTHRITIS
     Dosage: 5 MG, QD
     Route: 048
     Dates: start: 1984
  5. FOSAMAX [Suspect]
     Active Substance: ALENDRONATE SODIUM
     Indication: RHEUMATOID ARTHRITIS
     Dosage: 70 MG, QW
     Route: 048
     Dates: start: 20010728
  6. FOSAMAX [Suspect]
     Active Substance: ALENDRONATE SODIUM
     Indication: OSTEOPOROSIS
     Dosage: 10 MG
     Route: 048
     Dates: start: 19960514
  7. ALENDRONATE SODIUM. [Suspect]
     Active Substance: ALENDRONATE SODIUM
     Indication: RHEUMATOID ARTHRITIS
     Dosage: 70 MG, QW
     Route: 048
     Dates: start: 20081030, end: 20140427

REACTIONS (27)
  - Intramedullary rod insertion [Unknown]
  - Constipation [Unknown]
  - Femur fracture [Unknown]
  - Upper limb fracture [Unknown]
  - Foot fracture [Unknown]
  - Foot operation [Unknown]
  - Headache [Unknown]
  - Femur fracture [Recovered/Resolved]
  - Arthralgia [Unknown]
  - Tonsillectomy [Unknown]
  - Fracture nonunion [Unknown]
  - Deep vein thrombosis [Unknown]
  - Fall [Recovered/Resolved]
  - Hypertension [Unknown]
  - Pulmonary embolism [Unknown]
  - Joint arthroplasty [Unknown]
  - Peripheral arterial occlusive disease [Unknown]
  - Foot fracture [Recovering/Resolving]
  - Bursal operation [Unknown]
  - Gait disturbance [Unknown]
  - Foot fracture [Recovered/Resolved]
  - Off label use [Unknown]
  - Low turnover osteopathy [Unknown]
  - Pain in extremity [Unknown]
  - Internal fixation of fracture [Recovered/Resolved]
  - Impaired healing [Unknown]
  - Overdose [Unknown]

NARRATIVE: CASE EVENT DATE: 19960514
